FAERS Safety Report 23505645 (Version 1)
Quarter: 2024Q1

REPORT INFORMATION
  Report Type: Spontaneous
  Country: US (occurrence: US)
  Receive Date: 20240209
  Receipt Date: 20240209
  Transmission Date: 20240410
  Serious: No
  Sender: FDA-Public Use
  Company Number: US-STRIDES ARCOLAB LIMITED-2023SP010817

PATIENT
  Age: 76 Year
  Sex: Female

DRUGS (10)
  1. MYCOPHENOLATE MOFETIL [Suspect]
     Active Substance: MYCOPHENOLATE MOFETIL
     Indication: Troponin increased
     Dosage: UNK (TAPERING DOSE WAS GIVEN)
     Route: 065
     Dates: start: 2022
  2. ABATACEPT [Concomitant]
     Active Substance: ABATACEPT
     Indication: Troponin increased
     Dosage: UNK
     Route: 065
     Dates: start: 2022
  3. RELATLIMAB [Concomitant]
     Active Substance: RELATLIMAB
     Indication: Metastatic malignant melanoma
     Dosage: UNK
     Route: 065
     Dates: start: 202209
  4. NIVOLUMAB [Concomitant]
     Active Substance: NIVOLUMAB
     Indication: Metastatic malignant melanoma
     Dosage: UNK
     Route: 065
     Dates: start: 202209
  5. METHYLPREDNISOLONE [Concomitant]
     Active Substance: METHYLPREDNISOLONE
     Indication: Myocarditis
     Dosage: 1 GRAM (PER DAY)
     Route: 042
     Dates: start: 2022, end: 2022
  6. METHYLPREDNISOLONE [Concomitant]
     Active Substance: METHYLPREDNISOLONE
     Indication: Myositis
     Dosage: 1.5 MILLIGRAM/KILOGRAM PER DAY
     Route: 042
     Dates: start: 2022, end: 2022
  7. METHYLPREDNISOLONE [Concomitant]
     Active Substance: METHYLPREDNISOLONE
     Indication: Myasthenia gravis
  8. PREDNISONE [Concomitant]
     Active Substance: PREDNISONE
     Indication: Myocarditis
     Dosage: UNK (TAPERING DOSE WAS GIVEN)
     Route: 042
     Dates: start: 2022
  9. PREDNISONE [Concomitant]
     Active Substance: PREDNISONE
     Indication: Myositis
  10. PREDNISONE [Concomitant]
     Active Substance: PREDNISONE
     Indication: Myasthenia gravis

REACTIONS (1)
  - Off label use [Unknown]

NARRATIVE: CASE EVENT DATE: 20220101
